FAERS Safety Report 17268213 (Version 1)
Quarter: 2020Q1

REPORT INFORMATION
  Report Type: Spontaneous
  Country: FR (occurrence: FR)
  Receive Date: 20200114
  Receipt Date: 20200114
  Transmission Date: 20200409
  Serious: Yes (Hospitalization, Other)
  Sender: FDA-Public Use
  Company Number: FR-SAMSUNG BIOEPIS-SB-2019-40784

PATIENT
  Age: 68 Year
  Sex: Male
  Weight: 90 kg

DRUGS (11)
  1. ENBREL [Suspect]
     Active Substance: ETANERCEPT
     Indication: PSORIATIC ARTHROPATHY
     Route: 058
     Dates: start: 2015, end: 201810
  2. DOLIPRANE [Concomitant]
     Active Substance: ACETAMINOPHEN
     Indication: PAIN
     Dosage: IF NECESSARY
     Route: 048
  3. ATROVENT [Concomitant]
     Active Substance: IPRATROPIUM BROMIDE
     Indication: CHRONIC OBSTRUCTIVE PULMONARY DISEASE
     Dosage: 1-0-1
     Route: 055
  4. IBUPROFENE [Concomitant]
     Active Substance: IBUPROFEN
     Indication: PAIN
     Dosage: 1-0-1
     Route: 003
     Dates: end: 20191006
  5. BENEPALI [Suspect]
     Active Substance: ETANERCEPT
     Indication: PSORIATIC ARTHROPATHY
     Route: 058
     Dates: start: 201810, end: 20191011
  6. BETNEVAL [Concomitant]
     Active Substance: BETAMETHASONE VALERATE
     Indication: PSORIATIC ARTHROPATHY
     Dosage: 1-0-1
     Route: 003
     Dates: end: 20191006
  7. ZYMAD [Concomitant]
     Active Substance: CHOLECALCIFEROL
     Indication: VITAMIN SUPPLEMENTATION
     Dosage: 1 AMP EVERY 2 MONTHS
     Route: 048
     Dates: end: 20191006
  8. BRICANYL [Concomitant]
     Active Substance: TERBUTALINE SULFATE
     Indication: CHRONIC OBSTRUCTIVE PULMONARY DISEASE
     Dosage: 1-0-1
     Route: 055
  9. SPIRIVA RESPIMAT [Concomitant]
     Active Substance: TIOTROPIUM BROMIDE
     Indication: CHRONIC OBSTRUCTIVE PULMONARY DISEASE
     Dosage: 2-0-0
     Route: 055
  10. SYMBICORT [Concomitant]
     Active Substance: BUDESONIDE\FORMOTEROL FUMARATE DIHYDRATE
     Indication: CHRONIC OBSTRUCTIVE PULMONARY DISEASE
     Dosage: SYMBICORT TURBUHALER, 400/12 MICROGRAMS
     Route: 055
  11. VENTOLINE [Concomitant]
     Active Substance: ALBUTEROL
     Indication: DYSPNOEA
     Dosage: IF NECESSARY
     Route: 055

REACTIONS (5)
  - Bronchospasm [Recovering/Resolving]
  - Coronary artery disease [Unknown]
  - Respiratory distress [Recovering/Resolving]
  - Lung disorder [Unknown]
  - Chronic obstructive pulmonary disease [Not Recovered/Not Resolved]

NARRATIVE: CASE EVENT DATE: 201907
